FAERS Safety Report 8789270 (Version 1)
Quarter: 2012Q4

REPORT INFORMATION
  Report Type: Spontaneous
  Country: US (occurrence: None)
  Receive Date: 20120910
  Receipt Date: 20120910
  Transmission Date: 20130627
  Serious: Yes (Hospitalization)
  Sender: FDA-Public Use
  Company Number: None

PATIENT
  Age: 22 Year
  Sex: Female
  Weight: 61.24 kg

DRUGS (2)
  1. PROZAC [Suspect]
     Indication: BULIMIA
     Route: 048
     Dates: start: 20090606, end: 20120401
  2. ADDERALL [Suspect]

REACTIONS (7)
  - Suicide attempt [None]
  - Educational problem [None]
  - Abnormal behaviour [None]
  - Depression [None]
  - Job dissatisfaction [None]
  - Insomnia [None]
  - Legal problem [None]
